FAERS Safety Report 12728361 (Version 1)
Quarter: 2016Q3

REPORT INFORMATION
  Report Type: Report from Study
  Country: PL (occurrence: PL)
  Receive Date: 20160909
  Receipt Date: 20160909
  Transmission Date: 20161109
  Serious: Yes (Hospitalization)
  Sender: FDA-Public Use
  Company Number: PL-ASTELLAS-2016US035152

PATIENT
  Age: 8 Year
  Sex: Male

DRUGS (2)
  1. TACROLIMUS. [Suspect]
     Active Substance: TACROLIMUS
     Indication: DERMATITIS ATOPIC
     Dosage: 0.03 %, UNKNOWN FREQ.
     Route: 061
     Dates: start: 20100622
  2. TACROLIMUS. [Suspect]
     Active Substance: TACROLIMUS
     Dosage: 0.03 %, ONCE A DAY, TWICE WEEKLY
     Route: 061
     Dates: start: 20120113

REACTIONS (2)
  - Pharyngotonsillitis [Unknown]
  - Off label use [Unknown]

NARRATIVE: CASE EVENT DATE: 20160825
